FAERS Safety Report 21951825 (Version 2)
Quarter: 2023Q1

REPORT INFORMATION
  Report Type: Spontaneous
  Country: US (occurrence: US)
  Receive Date: 20230203
  Receipt Date: 20230307
  Transmission Date: 20230417
  Serious: Yes (Other)
  Sender: FDA-Public Use
  Company Number: US-PFIZER INC-202200297117

PATIENT
  Age: 84 Year
  Sex: Male
  Weight: 61.23 kg

DRUGS (1)
  1. VYNDAMAX [Suspect]
     Active Substance: TAFAMIDIS
     Indication: Cardiac amyloidosis
     Dosage: 61 MG

REACTIONS (3)
  - Atrial fibrillation [Unknown]
  - Pollakiuria [Recovering/Resolving]
  - Heart rate increased [Unknown]
